FAERS Safety Report 7345505-9 (Version None)
Quarter: 2011Q1

REPORT INFORMATION
  Report Type: 
  Country: None (occurrence: None)
  Receive Date: 20110310
  Receipt Date: 20110301
  Transmission Date: 20110831
  Serious: Yes (Other)
  Sender: FDA-Public Use
  Company Number: US-ASTRAZENECA-2010SE32460

PATIENT
  Age: 63 Year
  Sex: Female

DRUGS (4)
  1. TOPROL-XL [Suspect]
     Route: 048
  2. SYMBICORT [Suspect]
     Indication: LUNG CARCINOMA CELL TYPE UNSPECIFIED STAGE IV
     Dosage: 160/4.5 MCG TWO PUFFS TWO TIMES A DAY
     Route: 055
  3. CRESTOR [Suspect]
     Route: 048
  4. ARIMIDEX [Suspect]
     Route: 048

REACTIONS (8)
  - LUNG NEOPLASM MALIGNANT [None]
  - DIABETES MELLITUS [None]
  - MUSCLE SPASMS [None]
  - BLOOD CHOLESTEROL INCREASED [None]
  - DRUG DOSE OMISSION [None]
  - MALAISE [None]
  - BREAST CANCER [None]
  - OFF LABEL USE [None]
